FAERS Safety Report 9760288 (Version 2)
Quarter: 2015Q3

REPORT INFORMATION
  Report Type: Spontaneous
  Country: US (occurrence: US)
  Receive Date: 20131216
  Receipt Date: 20150806
  Transmission Date: 20151125
  Serious: Yes (Hospitalization)
  Sender: FDA-Public Use
  Company Number: US-GILEAD-2010-0028868

PATIENT
  Age: 69 Year
  Sex: Female
  Weight: 63.96 kg

DRUGS (13)
  1. IRON [Concomitant]
     Active Substance: IRON
  2. EVOXAC [Concomitant]
     Active Substance: CEVIMELINE HYDROCHLORIDE
  3. LEVOTHYROXINE. [Concomitant]
     Active Substance: LEVOTHYROXINE
  4. ALDACTONE [Concomitant]
     Active Substance: SPIRONOLACTONE
  5. IMODIUM A-D [Concomitant]
     Active Substance: LOPERAMIDE HYDROCHLORIDE
  6. MULTIVITAMIN [Concomitant]
     Active Substance: VITAMINS
  7. LETAIRIS [Suspect]
     Active Substance: AMBRISENTAN
     Indication: PULMONARY ARTERIAL HYPERTENSION
     Route: 048
     Dates: start: 20090822
  8. FUROSEMIDE. [Concomitant]
     Active Substance: FUROSEMIDE
  9. VITAMIN D [Concomitant]
     Active Substance: CHOLECALCIFEROL
  10. REMODULIN [Concomitant]
     Active Substance: TREPROSTINIL
  11. AMIODARONE [Concomitant]
     Active Substance: AMIODARONE
  12. FOLIC ACID. [Concomitant]
     Active Substance: FOLIC ACID
  13. MICRO-K [Concomitant]
     Active Substance: POTASSIUM CHLORIDE

REACTIONS (1)
  - Fluid overload [Unknown]
